FAERS Safety Report 14147089 (Version 2)
Quarter: 2017Q4

REPORT INFORMATION
  Report Type: Spontaneous
  Country: GB (occurrence: GB)
  Receive Date: 20171031
  Receipt Date: 20171124
  Transmission Date: 20180321
  Serious: Yes (Other)
  Sender: FDA-Public Use
  Company Number: GB-009507513-1710GBR012733

PATIENT
  Age: 33 Year
  Sex: Female
  Weight: 64 kg

DRUGS (1)
  1. NEXPLANON [Suspect]
     Active Substance: ETONOGESTREL
     Indication: CONTRACEPTION
     Dosage: 1 DF, UNK
     Route: 058
     Dates: start: 20150311, end: 20171031

REACTIONS (20)
  - Dyspnoea [Unknown]
  - Paraesthesia [Unknown]
  - Grip strength decreased [Unknown]
  - Fibromyalgia [Unknown]
  - Hypoaesthesia [Not Recovered/Not Resolved]
  - Adverse event [Unknown]
  - Cerebrovascular accident [Unknown]
  - Migraine with aura [Not Recovered/Not Resolved]
  - Blindness [Unknown]
  - Headache [Unknown]
  - Chest pain [Unknown]
  - Cerebrovascular disorder [Unknown]
  - Photophobia [Not Recovered/Not Resolved]
  - Memory impairment [Recovered/Resolved]
  - Pain in extremity [Unknown]
  - Phonophobia [Unknown]
  - Feeling abnormal [Unknown]
  - Paraesthesia oral [Unknown]
  - Dizziness [Unknown]
  - Vision blurred [Unknown]

NARRATIVE: CASE EVENT DATE: 2015
